FAERS Safety Report 24184239 (Version 3)
Quarter: 2025Q3

REPORT INFORMATION
  Report Type: Spontaneous
  Country: US (occurrence: US)
  Receive Date: 20240807
  Receipt Date: 20250729
  Transmission Date: 20251021
  Serious: Yes (Hospitalization, Disabling, Other)
  Sender: SANOFI AVENTIS
  Company Number: US-SA-SAC20240805000995

PATIENT
  Age: 74 Year
  Sex: Female
  Weight: 84.36 kg

DRUGS (11)
  1. DUPIXENT [Suspect]
     Active Substance: DUPILUMAB
     Indication: Asthma
     Dosage: 300 MG, QOW
     Route: 058
  2. DUPIXENT [Suspect]
     Active Substance: DUPILUMAB
     Indication: Ill-defined disorder
  3. MYRBETRIQ [Concomitant]
     Active Substance: MIRABEGRON
  4. EZETIMIBE [Concomitant]
     Active Substance: EZETIMIBE
  5. FLONASE ALLERGY RELIEF [Concomitant]
     Active Substance: FLUTICASONE PROPIONATE
  6. PRIMIDONE [Concomitant]
     Active Substance: PRIMIDONE
  7. LOVENOX [Concomitant]
     Active Substance: ENOXAPARIN SODIUM
  8. MONTELUKAST SODIUM [Concomitant]
     Active Substance: MONTELUKAST SODIUM
  9. PRILOSEC OTC [Concomitant]
     Active Substance: OMEPRAZOLE MAGNESIUM
  10. ATORVASTATIN CALCIUM [Concomitant]
     Active Substance: ATORVASTATIN CALCIUM
  11. ALBUTEROL SULFATE [Concomitant]
     Active Substance: ALBUTEROL SULFATE

REACTIONS (7)
  - Fall [Unknown]
  - Hip fracture [Not Recovered/Not Resolved]
  - Fracture pain [Unknown]
  - Mobility decreased [Unknown]
  - Femur fracture [Unknown]
  - Gait inability [Unknown]
  - Cough [Unknown]

NARRATIVE: CASE EVENT DATE: 20240101
